FAERS Safety Report 9116059 (Version 2)
Quarter: 2013Q1

REPORT INFORMATION
  Report Type: Spontaneous
  Country: CN (occurrence: CN)
  Receive Date: 20130225
  Receipt Date: 20130320
  Transmission Date: 20140127
  Serious: Yes (Other)
  Sender: FDA-Public Use
  Company Number: CN-BAYER-2013-010291

PATIENT
  Age: 44 Year
  Sex: Female

DRUGS (1)
  1. MIRENA [Suspect]
     Indication: ENDOMETRIOSIS
     Dosage: 20 MCG/24HR, CONT
     Route: 015
     Dates: start: 200909

REACTIONS (3)
  - Vaginal haemorrhage [Recovered/Resolved]
  - Off label use [None]
  - Breast cancer [Recovered/Resolved]
